FAERS Safety Report 8847306 (Version 1)
Quarter: 2012Q4

REPORT INFORMATION
  Report Type: 
  Country: US (occurrence: US)
  Receive Date: 20121018
  Receipt Date: 20121018
  Transmission Date: 20130627
  Serious: No
  Sender: FDA-Public Use
  Company Number: US-PFIZER INC-2012258237

PATIENT
  Age: 42 Year
  Sex: Male
  Weight: 102.4 kg

DRUGS (3)
  1. PRISTIQ [Suspect]
     Indication: ANXIETY
     Dosage: 100 mg, UNK
  2. EFFEXOR XR [Suspect]
     Indication: ANXIETY
     Dosage: 150 mg, 1x/day
     Dates: start: 201210
  3. ALPRAZOLAM [Concomitant]
     Dosage: 0.5 mg, 2x/day

REACTIONS (6)
  - Malaise [Not Recovered/Not Resolved]
  - Nausea [Recovered/Resolved]
  - Feeling abnormal [Not Recovered/Not Resolved]
  - Disturbance in attention [Not Recovered/Not Resolved]
  - Drug ineffective [Unknown]
  - Off label use [Unknown]
